FAERS Safety Report 17994971 (Version 3)
Quarter: 2020Q3

REPORT INFORMATION
  Report Type: Spontaneous
  Country: GB (occurrence: GB)
  Receive Date: 20200708
  Receipt Date: 20200825
  Transmission Date: 20201103
  Serious: Yes (Other)
  Sender: FDA-Public Use
  Company Number: GB-PFIZER INC-2020260540

PATIENT
  Age: 76 Year
  Sex: Male

DRUGS (1)
  1. CAVERJECT [Suspect]
     Active Substance: ALPROSTADIL
     Dosage: 20 UG

REACTIONS (2)
  - Erectile dysfunction [Unknown]
  - Sexual dysfunction [Unknown]
